FAERS Safety Report 17336273 (Version 1)
Quarter: 2020Q1

REPORT INFORMATION
  Report Type: Spontaneous
  Country: SG (occurrence: SG)
  Receive Date: 20200129
  Receipt Date: 20200129
  Transmission Date: 20200409
  Serious: Yes (Disabling)
  Sender: FDA-Public Use
  Company Number: SG-TERSERA THERAPEUTICS LLC-2020TRS000183

PATIENT

DRUGS (1)
  1. ZOLADEX [Suspect]
     Active Substance: GOSERELIN ACETATE
     Indication: PROSTATE CANCER
     Dosage: 10.8 MILLIGRAM, EVERY THREE MONTHS
     Route: 058

REACTIONS (2)
  - Hemianopia [Unknown]
  - Papilloedema [Unknown]
